FAERS Safety Report 7138648-6 (Version None)
Quarter: 2010Q4

REPORT INFORMATION
  Report Type: 
  Country: None (occurrence: None)
  Receive Date: 20101206
  Receipt Date: 20101125
  Transmission Date: 20110411
  Serious: Yes (Hospitalization)
  Sender: FDA-Public Use
  Company Number: JP-MERCK-1011USA01134

PATIENT
  Age: 77 Year
  Sex: Male
  Weight: 55 kg

DRUGS (5)
  1. JANUVIA [Suspect]
     Indication: BLOOD GLUCOSE ABNORMAL
     Route: 048
     Dates: start: 20100430, end: 20101001
  2. JANUVIA [Suspect]
     Route: 048
     Dates: start: 20101001
  3. AMARYL [Concomitant]
     Indication: BLOOD GLUCOSE ABNORMAL
     Route: 048
     Dates: start: 20100528
  4. BLOPRESS [Concomitant]
     Indication: BLOOD PRESSURE ABNORMAL
     Route: 048
     Dates: start: 20100528
  5. NORVASC [Concomitant]
     Indication: BLOOD PRESSURE ABNORMAL
     Route: 048
     Dates: start: 20100825

REACTIONS (1)
  - HERPES ZOSTER [None]
